FAERS Safety Report 18735208 (Version 1)
Quarter: 2021Q1

REPORT INFORMATION
  Report Type: Spontaneous
  Country: US (occurrence: US)
  Receive Date: 20210112
  Receipt Date: 20210112
  Transmission Date: 20210419
  Serious: Yes (Other)
  Sender: FDA-Public Use
  Company Number: None

PATIENT

DRUGS (1)
  1. FENTANYL TRANSDERMAL SYSTEM [Suspect]
     Active Substance: FENTANYL
     Dates: start: 20201211, end: 20210107

REACTIONS (7)
  - Pain [None]
  - Diarrhoea [None]
  - Inadequate analgesia [None]
  - Irritability [None]
  - Dyskinesia [None]
  - Restlessness [None]
  - Abdominal pain upper [None]
